FAERS Safety Report 9013337 (Version 1)
Quarter: 2013Q1

REPORT INFORMATION
  Report Type: Spontaneous
  Country: US (occurrence: None)
  Receive Date: 20130107
  Receipt Date: 20130107
  Transmission Date: 20140127
  Serious: No
  Sender: FDA-Public Use
  Company Number: None

PATIENT
  Sex: Male

DRUGS (2)
  1. GABAPENTIN [Suspect]
     Indication: SPINAL CORD INJURY
  2. LYRICA [Suspect]
     Indication: SPINAL CORD INJURY

REACTIONS (1)
  - Drug ineffective [None]
